FAERS Safety Report 20160333 (Version 3)
Quarter: 2022Q1

REPORT INFORMATION
  Report Type: Report from Study
  Country: US (occurrence: US)
  Receive Date: 20211208
  Receipt Date: 20220211
  Transmission Date: 20220423
  Serious: Yes (Other)
  Sender: FDA-Public Use
  Company Number: US-BAYER-2021A259521

PATIENT
  Age: 55 Year
  Sex: Male

DRUGS (3)
  1. STIVARGA [Suspect]
     Active Substance: REGORAFENIB
     Indication: Colorectal cancer metastatic
     Dosage: 160 MG, QD
     Dates: start: 20211026, end: 202111
  2. STIVARGA [Suspect]
     Active Substance: REGORAFENIB
     Indication: Colorectal cancer metastatic
     Dosage: 120 MG, QD
     Dates: start: 202111, end: 202201
  3. STIVARGA [Suspect]
     Active Substance: REGORAFENIB
     Indication: Colorectal cancer metastatic
     Dosage: DAILY DOSE 80 MG FOR 21 DAYS OF 28 DAY CYCLE
     Route: 048
     Dates: start: 202201

REACTIONS (8)
  - Neuropathy peripheral [None]
  - Injury [Not Recovered/Not Resolved]
  - Rash [None]
  - Oral pain [None]
  - Dry skin [None]
  - Pain in extremity [None]
  - Thinking abnormal [None]
  - Hypertension [Not Recovered/Not Resolved]
